FAERS Safety Report 18979612 (Version 1)
Quarter: 2021Q1

REPORT INFORMATION
  Report Type: Spontaneous
  Country: US (occurrence: US)
  Receive Date: 20210305
  Receipt Date: 20210305
  Transmission Date: 20210420
  Serious: Yes (Other)
  Sender: FDA-Public Use
  Company Number: None

PATIENT
  Age: 71 Year
  Sex: Male
  Weight: 93 kg

DRUGS (6)
  1. CAVEDILOL [Concomitant]
     Active Substance: CARVEDILOL
  2. PANTOPRAZOLE [Concomitant]
     Active Substance: PANTOPRAZOLE
  3. LEVETIRACETAM. [Concomitant]
     Active Substance: LEVETIRACETAM
  4. ELIQUIS [Concomitant]
     Active Substance: APIXABAN
  5. TRIFERIC [Suspect]
     Active Substance: FERRIC PYROPHOSPHATE CITRATE
     Indication: MINERAL SUPPLEMENTATION
     Dosage: ?          QUANTITY:1 DF DOSAGE FORM;OTHER FREQUENCY:EVERY DIALYSIS TX;?
     Route: 010
     Dates: start: 20210209, end: 20210209
  6. AMLODIPINE [Concomitant]
     Active Substance: AMLODIPINE BESYLATE

REACTIONS (5)
  - Arteriovenous fistula thrombosis [None]
  - Arteriovenous graft thrombosis [None]
  - Dialysis [None]
  - Thrombosis in device [None]
  - Complication associated with device [None]

NARRATIVE: CASE EVENT DATE: 20210211
